FAERS Safety Report 16376215 (Version 1)
Quarter: 2019Q2

REPORT INFORMATION
  Report Type: Spontaneous
  Country: NZ (occurrence: NZ)
  Receive Date: 20190531
  Receipt Date: 20190531
  Transmission Date: 20190711
  Serious: Yes (Hospitalization)
  Sender: FDA-Public Use
  Company Number: NZ-MYLANLABS-2019M1051223

PATIENT
  Age: 76 Year
  Sex: Female

DRUGS (1)
  1. CLOZARIL [Suspect]
     Active Substance: CLOZAPINE
     Indication: SCHIZOPHRENIA
     Dosage: UNK
     Route: 048
     Dates: start: 20190318

REACTIONS (9)
  - Red blood cell count decreased [Unknown]
  - Mean cell haemoglobin concentration decreased [Recovering/Resolving]
  - Haemoglobin decreased [Recovering/Resolving]
  - White blood cell count increased [Recovering/Resolving]
  - Physical deconditioning [Unknown]
  - Haematocrit decreased [Unknown]
  - Immature granulocyte count increased [Recovering/Resolving]
  - Neutrophil count increased [Not Recovered/Not Resolved]
  - Red cell distribution width increased [Recovering/Resolving]

NARRATIVE: CASE EVENT DATE: 20190322
